FAERS Safety Report 18656460 (Version 1)
Quarter: 2020Q4

REPORT INFORMATION
  Report Type: Spontaneous
  Country: JP (occurrence: JP)
  Receive Date: 20201223
  Receipt Date: 20201223
  Transmission Date: 20210114
  Serious: Yes (Hospitalization, Other)
  Sender: FDA-Public Use
  Company Number: JP-PFIZER INC-2020507402

PATIENT
  Age: 80 Year
  Sex: Female
  Weight: 41 kg

DRUGS (6)
  1. VALACICLOVIR [Interacting]
     Active Substance: VALACYCLOVIR HYDROCHLORIDE
     Indication: HERPES ZOSTER
     Dosage: 2500 MG/DAY, UNKNOWN FREQ.
     Route: 048
  2. RABBIT VACCINIA EXTRACT [Concomitant]
     Active Substance: ORYCTOLAGUS CUNICULUS SKIN
     Dosage: UNK UNK, UNKNOWN FREQ.
     Route: 048
  3. LIDOCAINE. [Concomitant]
     Active Substance: LIDOCAINE
     Dosage: 5 ML
     Route: 065
  4. CELECOXIB. [Suspect]
     Active Substance: CELECOXIB
     Indication: HERPES ZOSTER
     Dosage: UNK UNK, UNKNOWN FREQ.
     Route: 048
  5. VALACICLOVIR [Interacting]
     Active Substance: VALACYCLOVIR HYDROCHLORIDE
     Dosage: 2000 MG/DAY, UNKNOWN FREQ.
     Route: 048
  6. BETAMETHASONE. [Concomitant]
     Active Substance: BETAMETHASONE
     Dosage: 4 MG
     Route: 065

REACTIONS (6)
  - Acute kidney injury [Unknown]
  - Toxic encephalopathy [Recovering/Resolving]
  - Drug interaction [Unknown]
  - Off label use [Unknown]
  - Blood glucose increased [Unknown]
  - C-reactive protein increased [Unknown]
